FAERS Safety Report 6171224-0 (Version None)
Quarter: 2009Q3

REPORT INFORMATION
  Report Type: 
  Country: None (occurrence: None)
  Receive Date: 20090428
  Receipt Date: 20090428
  Transmission Date: 20100115
  Serious: Yes (Disabling)
  Sender: FDA-Public Use
  Company Number: None

PATIENT
  Age: 58 Year
  Sex: Female
  Weight: 58.9676 kg

DRUGS (2)
  1. DEPO-MEDROL [Suspect]
     Indication: BACK PAIN
     Dosage: 40 MG 1 TIME IM
     Route: 030
     Dates: start: 20090209, end: 20090426
  2. DEPO-MEDROL [Suspect]
     Indication: NECK PAIN
     Dosage: 20 MG 1 TIME IM
     Route: 030

REACTIONS (16)
  - ABDOMINAL DISTENSION [None]
  - ABDOMINAL PAIN UPPER [None]
  - ANURIA [None]
  - DIZZINESS [None]
  - HEADACHE [None]
  - HEART RATE INCREASED [None]
  - HYPERTENSION [None]
  - INSOMNIA [None]
  - MOOD ALTERED [None]
  - MUSCLE SPASMS [None]
  - PRURITUS [None]
  - SCIATICA [None]
  - TREMOR [None]
  - URTICARIA [None]
  - VISUAL IMPAIRMENT [None]
  - WEIGHT INCREASED [None]
